FAERS Safety Report 25406726 (Version 1)
Quarter: 2025Q2

REPORT INFORMATION
  Report Type: Spontaneous
  Country: US (occurrence: US)
  Receive Date: 20250606
  Receipt Date: 20250606
  Transmission Date: 20250716
  Serious: No
  Sender: VERTEX
  Company Number: US-VERTEX PHARMACEUTICALS-2025-008622

PATIENT

DRUGS (1)
  1. TRIKAFTA [Suspect]
     Active Substance: ELEXACAFTOR\IVACAFTOR\TEZACAFTOR
     Indication: Cystic fibrosis
     Route: 048

REACTIONS (5)
  - Fatigue [Not Recovered/Not Resolved]
  - Facial pain [Recovering/Resolving]
  - Hot flush [Recovering/Resolving]
  - Night sweats [Not Recovered/Not Resolved]
  - Headache [Recovering/Resolving]
